FAERS Safety Report 12800669 (Version 1)
Quarter: 2016Q4

REPORT INFORMATION
  Report Type: Spontaneous
  Country: GB (occurrence: GB)
  Receive Date: 20161001
  Receipt Date: 20161001
  Transmission Date: 20170207
  Serious: Yes (Hospitalization)
  Sender: FDA-Public Use
  Company Number: GB-INTERNATIONAL MEDICATION SYSTEMS, LIMITED-1057896

PATIENT
  Age: 91 Year
  Sex: Female
  Weight: 49 kg

DRUGS (2)
  1. RAMIPRIL. [Suspect]
     Active Substance: RAMIPRIL
     Route: 048
     Dates: start: 20160818, end: 20160820
  2. FUROSEMIDE. [Suspect]
     Active Substance: FUROSEMIDE

REACTIONS (9)
  - Dyspnoea [None]
  - Bronchospasm [None]
  - Lower respiratory tract infection [None]
  - Eye swelling [None]
  - Swelling face [None]
  - Cough [None]
  - Lip swelling [None]
  - Urinary tract infection [None]
  - Wrong technique in product usage process [None]

NARRATIVE: CASE EVENT DATE: 20160818
